FAERS Safety Report 5010961-8 (Version None)
Quarter: 2006Q2

REPORT INFORMATION
  Report Type: 
  Country: None (occurrence: None)
  Receive Date: 20060523
  Receipt Date: 20060523
  Transmission Date: 20061013
  Serious: Yes (Death)
  Sender: FDA-Public Use
  Company Number: None

PATIENT
  Age: 48 Year
  Sex: Female
  Weight: 122 kg

DRUGS (4)
  1. LORAZEPAM [Suspect]
     Dosage: 0.5 MG IV
     Route: 042
     Dates: start: 20060214
  2. LORAZEPAM [Suspect]
     Dosage: 0.5 MG IV
     Route: 042
     Dates: start: 20060311
  3. LORAZEPAM [Suspect]
     Dosage: 0.5 MG IV
     Route: 042
     Dates: start: 20060317
  4. LORAZEPAM [Suspect]
     Dosage: 0.5 MG IV
     Route: 042
     Dates: start: 20060325

REACTIONS (5)
  - CONDITION AGGRAVATED [None]
  - CONFUSIONAL STATE [None]
  - CONTUSION [None]
  - EJECTION FRACTION DECREASED [None]
  - MENTAL STATUS CHANGES [None]
